FAERS Safety Report 10184861 (Version 1)
Quarter: 2014Q2

REPORT INFORMATION
  Report Type: Spontaneous
  Country: US (occurrence: None)
  Receive Date: 20140520
  Receipt Date: 20140520
  Transmission Date: 20141212
  Serious: No
  Sender: FDA-Public Use
  Company Number: None

PATIENT
  Age: 79 Year
  Sex: Male

DRUGS (13)
  1. METOPROLOL [Concomitant]
  2. LASIX [Concomitant]
  3. COUMADIN [Concomitant]
  4. PREDNISONE [Concomitant]
  5. TYLENOL [Concomitant]
  6. PRILOSEC [Concomitant]
  7. NITROSTAT [Concomitant]
  8. HYDROCODEINE [Concomitant]
  9. IMBRUVICA [Suspect]
     Indication: CHRONIC LYMPHOCYTIC LEUKAEMIA
     Route: 048
     Dates: start: 20140502
  10. AMBIEN [Concomitant]
  11. ASPIRIN (LOW DOSE) [Concomitant]
  12. SYNTHROID [Concomitant]
  13. RANEXA [Concomitant]

REACTIONS (3)
  - Asthenia [None]
  - Dyspnoea [None]
  - Insomnia [None]
